FAERS Safety Report 8060029-1 (Version None)
Quarter: 2012Q1

REPORT INFORMATION
  Report Type: 
  Country: None (occurrence: None)
  Receive Date: 20120120
  Receipt Date: 20120114
  Transmission Date: 20120608
  Serious: Yes (Other)
  Sender: FDA-Public Use
  Company Number: PHHY2012MX003909

PATIENT
  Sex: Male

DRUGS (1)
  1. STALEVO 100 [Suspect]
     Indication: PARKINSON'S DISEASE
     Dosage: 2  TABLETS (150/37.5/200 MG) DAILY
     Route: 048
     Dates: start: 20100101, end: 20110301

REACTIONS (1)
  - URINARY TRACT OBSTRUCTION [None]
